FAERS Safety Report 5074417-9 (Version None)
Quarter: 2006Q3

REPORT INFORMATION
  Report Type: 
  Country: None (occurrence: None)
  Receive Date: 20060803
  Receipt Date: 20060727
  Transmission Date: 20061208
  Serious: Yes (Hospitalization)
  Sender: FDA-Public Use
  Company Number: 2006-146013-NL

PATIENT
  Age: 90 Year
  Sex: Female

DRUGS (9)
  1. MIRTAZAPINE [Suspect]
     Indication: DEPRESSION
     Dosage: 15 MG ORAL
     Route: 048
     Dates: end: 20060404
  2. SPIRONOLACTONE [Suspect]
     Indication: HYPERTENSION
     Dosage: DF ORAL
     Route: 048
     Dates: end: 20060404
  3. TRAMADOL HCL [Suspect]
     Indication: CONTUSION
     Dosage: 200 MG ORAL
     Route: 048
     Dates: start: 20060330, end: 20060404
  4. TETRAZEPAM [Suspect]
     Indication: CONTUSION
     Dosage: 50 MG ORAL
     Route: 048
     Dates: start: 20060330, end: 20060404
  5. ALENDRONATE SODIUM [Concomitant]
  6. ACETAMINOPHEN [Concomitant]
  7. CACIT D3 [Concomitant]
  8. LEVOTHYROXINE SODIUM [Concomitant]
  9. PANTOPRAZOLE SODIUM [Concomitant]

REACTIONS (12)
  - ASTHENIA [None]
  - CONFUSIONAL STATE [None]
  - DIARRHOEA [None]
  - DRUG INTERACTION [None]
  - FALL [None]
  - HYPONATRAEMIA [None]
  - MUSCULOSKELETAL CHEST PAIN [None]
  - NAUSEA [None]
  - SKIN WRINKLING [None]
  - SOMNOLENCE [None]
  - TONGUE DRY [None]
  - VOMITING [None]
